FAERS Safety Report 20197224 (Version 1)
Quarter: 2021Q4

REPORT INFORMATION
  Report Type: Spontaneous
  Country: US (occurrence: US)
  Receive Date: 20211217
  Receipt Date: 20211217
  Transmission Date: 20220303
  Serious: Yes (Hospitalization, Other)
  Sender: FDA-Public Use
  Company Number: US-GLAND PHARMA LIMITED-2021US008430

PATIENT
  Age: 76 Year
  Sex: Male

DRUGS (4)
  1. AMIODARONE HYDROCHLORIDE [Suspect]
     Active Substance: AMIODARONE HYDROCHLORIDE
     Indication: Atrial fibrillation
     Dosage: UNK
     Route: 065
  2. TENOFOVIR [Concomitant]
     Active Substance: TENOFOVIR
     Indication: Hepatic cirrhosis
     Dosage: UNK
     Route: 065
  3. TENOFOVIR [Concomitant]
     Active Substance: TENOFOVIR
     Indication: Hepatitis B
  4. APIXABAN [Concomitant]
     Active Substance: APIXABAN
     Indication: Atrial fibrillation
     Dosage: UNK
     Route: 065

REACTIONS (2)
  - BRASH syndrome [Recovering/Resolving]
  - Drug-induced liver injury [Recovering/Resolving]
